FAERS Safety Report 4837559-6 (Version None)
Quarter: 2005Q4

REPORT INFORMATION
  Report Type: 
  Country: None (occurrence: None)
  Receive Date: 20051024
  Receipt Date: 20050824
  Transmission Date: 20060501
  Serious: No
  Sender: FDA-Public Use
  Company Number: 215800

PATIENT
  Age: 13 Year
  Sex: Male
  Weight: 41.7 kg

DRUGS (4)
  1. XOLAIR [Suspect]
     Indication: DRUG USE FOR UNKNOWN INDICATION
     Dosage: 150 MG, 1/MONTH, SUBCUTANEOUS
     Route: 058
     Dates: start: 20050121
  2. FLOVENT [Concomitant]
  3. ZYRTEC (PSEUDOEPHEDRINE HYDROCHLORIDE) [Concomitant]
  4. ALBUTEROL INHALER (ALBUTEROL, ALBUTEROL SULFATE) [Concomitant]

REACTIONS (1)
  - MUSCULOSKELETAL STIFFNESS [None]
